FAERS Safety Report 6210949-5 (Version None)
Quarter: 2009Q2

REPORT INFORMATION
  Report Type: 
  Country: None (occurrence: None)
  Receive Date: 20090602
  Receipt Date: 20070531
  Transmission Date: 20091009
  Serious: Yes (Other)
  Sender: FDA-Public Use
  Company Number: US-ASTRAZENECA-2006UW20942

PATIENT
  Age: 21418 Day
  Sex: Male
  Weight: 116.7 kg

DRUGS (28)
  1. SEROQUEL [Suspect]
     Indication: SCHIZOPHRENIA
     Dosage: 25 TO 75 MG
     Route: 048
     Dates: start: 20020531
  2. SEROQUEL [Suspect]
     Route: 048
     Dates: end: 20060316
  3. ABILIFY [Concomitant]
  4. CLOZARIL [Concomitant]
  5. GEODON [Concomitant]
  6. HALDOL [Concomitant]
  7. NAVANE [Concomitant]
  8. RISPERDAL [Concomitant]
  9. SOLIAN [Concomitant]
  10. STELAZINE [Concomitant]
  11. THORAZINE [Concomitant]
  12. TRILAFON [Concomitant]
  13. ZYPREXA [Concomitant]
  14. ASPIRIN [Concomitant]
     Indication: ANTICOAGULANT THERAPY
     Dosage: 325 MG, 81 MG FLUCTUATING
     Route: 048
     Dates: start: 20020401
  15. GLYBURIDE [Concomitant]
     Dosage: 5 MG,10 MG
     Route: 048
     Dates: start: 20020401
  16. INSULIN HUMAN REGULAR [Concomitant]
     Dates: start: 20041003
  17. LISINOPRIL [Concomitant]
     Indication: BLOOD PRESSURE
     Dosage: 10 MG, 20 MG
     Route: 048
     Dates: start: 20020401
  18. LORAZEPAM [Concomitant]
     Dosage: 2 MG FLUCTUATING
     Route: 048
     Dates: start: 20041004
  19. ISOSORBIDE DINITRATE [Concomitant]
     Indication: CHEST PAIN
     Route: 048
     Dates: start: 20020401
  20. METFORMIN [Concomitant]
     Indication: DIABETES MELLITUS
     Dosage: 500 MG FLUCTUATING
     Dates: start: 20060124
  21. PROPRANOLOL HYDROCHLORIDE [Concomitant]
     Route: 048
     Dates: start: 20060119
  22. GABAPENTIN [Concomitant]
     Indication: NEUROPATHY PERIPHERAL
     Dosage: 300 MG FLUCTUATING
     Route: 048
     Dates: start: 20020401
  23. GABAPENTIN [Concomitant]
     Indication: DEPRESSION
     Dosage: 300 MG FLUCTUATING
     Route: 048
     Dates: start: 20020401
  24. SIMVASTATIN [Concomitant]
     Route: 048
     Dates: start: 20060124
  25. BENZTROPINE [Concomitant]
     Route: 048
  26. MIRTAZAPINE [Concomitant]
     Indication: BLOOD CHOLESTEROL
     Route: 048
     Dates: start: 20041012
  27. HYDROCHLOROTHIAZIDE [Concomitant]
     Indication: BLOOD PRESSURE
     Route: 048
     Dates: start: 20070518
  28. ACETAMINOPHEN [Concomitant]
     Indication: PAIN
     Route: 048
     Dates: start: 20041004

REACTIONS (2)
  - DIABETES MELLITUS [None]
  - NEUROPATHY PERIPHERAL [None]
